FAERS Safety Report 7267256-1 (Version None)
Quarter: 2011Q1

REPORT INFORMATION
  Report Type: 
  Country: None (occurrence: None)
  Receive Date: 20110201
  Receipt Date: 20110131
  Transmission Date: 20110831
  Serious: Yes (Death)
  Sender: FDA-Public Use
  Company Number: DE-SANOFI-AVENTIS-2011SA005827

PATIENT
  Age: 82 Year
  Sex: Female

DRUGS (7)
  1. TORSEMIDE [Concomitant]
     Route: 048
  2. CLEXANE [Suspect]
     Dosage: 4 X 0.3 ML PER WEEK
     Route: 058
  3. METOPROLOL SUCCINATE [Concomitant]
     Indication: HYPERTENSION
     Route: 048
  4. PANTOPRAZOLE [Concomitant]
     Route: 048
  5. VIT K ANTAGONISTS [Concomitant]
     Indication: THROMBOSIS PROPHYLAXIS
     Route: 065
  6. ALL OTHER THERAPEUTIC PRODUCTS [Concomitant]
     Indication: ANAEMIA
     Route: 065
     Dates: start: 20100801
  7. DIGITALIS TAB [Concomitant]
     Route: 065

REACTIONS (2)
  - CARDIAC FAILURE [None]
  - MULTI-ORGAN FAILURE [None]
